FAERS Safety Report 14877494 (Version 2)
Quarter: 2020Q1

REPORT INFORMATION
  Report Type: Report from Study
  Country: US (occurrence: US)
  Receive Date: 20180510
  Receipt Date: 20200318
  Transmission Date: 20200409
  Serious: Yes (Hospitalization)
  Sender: FDA-Public Use
  Company Number: US-ACTELION-A-NJ2018-171699

PATIENT
  Age: 65 Year
  Sex: Female
  Weight: 90.7 kg

DRUGS (6)
  1. UPTRAVI [Suspect]
     Active Substance: SELEXIPAG
     Dosage: 200 MCG, BID
     Route: 048
     Dates: start: 20180419, end: 20180423
  2. NARCAN [Concomitant]
     Active Substance: NALOXONE HYDROCHLORIDE
  3. UPTRAVI [Suspect]
     Active Substance: SELEXIPAG
     Indication: PULMONARY HYPERTENSION
     Dosage: 400 MCG, BID
     Route: 048
     Dates: start: 20180424, end: 2018
  4. COUMADIN [Concomitant]
     Active Substance: WARFARIN SODIUM
  5. AMLODIPINE [Concomitant]
     Active Substance: AMLODIPINE BESYLATE
  6. TRACLEER [Suspect]
     Active Substance: BOSENTAN
     Indication: PULMONARY HYPERTENSION
     Dosage: 125 MG, BID
     Route: 048
     Dates: end: 2018

REACTIONS (16)
  - Hypotension [Unknown]
  - Pain [Unknown]
  - Eye irritation [Unknown]
  - Swelling face [Unknown]
  - Erythema [Unknown]
  - Diarrhoea [Unknown]
  - Delirium [Unknown]
  - Flushing [Unknown]
  - Pericardial effusion [Unknown]
  - Memory impairment [Unknown]
  - Therapy non-responder [Unknown]
  - Nausea [Unknown]
  - Pulmonary arterial hypertension [Unknown]
  - Hypersensitivity [Unknown]
  - Pruritus [Unknown]
  - Fluid retention [Unknown]

NARRATIVE: CASE EVENT DATE: 20180425
